FAERS Safety Report 21204076 (Version 1)
Quarter: 2022Q3

REPORT INFORMATION
  Report Type: Spontaneous
  Country: IN (occurrence: IN)
  Receive Date: 20220812
  Receipt Date: 20220812
  Transmission Date: 20221027
  Serious: Yes (Life-Threatening, Other)
  Sender: FDA-Public Use
  Company Number: IN-drreddys-LIT/IND/22/0153170

PATIENT
  Age: 53 Year
  Sex: Male

DRUGS (2)
  1. DEXAMETHASONE [Suspect]
     Active Substance: DEXAMETHASONE
     Indication: Anaplastic large-cell lymphoma
  2. THALIDOMIDE [Suspect]
     Active Substance: THALIDOMIDE
     Indication: Anaplastic large-cell lymphoma

REACTIONS (2)
  - Therapy partial responder [Unknown]
  - Disease progression [Unknown]
